FAERS Safety Report 6219884-X (Version None)
Quarter: 2009Q2

REPORT INFORMATION
  Report Type: 
  Country: None (occurrence: None)
  Receive Date: 20090609
  Receipt Date: 20090603
  Transmission Date: 20091009
  Serious: Yes (Disabling, Other)
  Sender: FDA-Public Use
  Company Number: GB-MERCK-0906GBR00023

PATIENT
  Age: 69 Year
  Sex: Female
  Weight: 84 kg

DRUGS (10)
  1. JANUVIA [Suspect]
     Indication: DIABETES MELLITUS
     Route: 048
     Dates: start: 20090306, end: 20090313
  2. ALENDRONIC ACID [Concomitant]
     Route: 065
  3. AZATHIOPRINE [Concomitant]
     Route: 065
  4. CALCIUM CARBONATE [Concomitant]
     Route: 065
  5. GLYBURIDE [Concomitant]
     Route: 065
  6. OMEPRAZOLE [Concomitant]
     Route: 065
  7. PREDNISOLONE [Concomitant]
     Route: 065
  8. PYRIDOSTIGMINE BROMIDE [Concomitant]
     Route: 065
  9. RAMIPRIL [Concomitant]
     Route: 065
  10. WARFARIN [Concomitant]
     Route: 065

REACTIONS (1)
  - MYASTHENIA GRAVIS [None]
